FAERS Safety Report 7574610-7 (Version None)
Quarter: 2011Q2

REPORT INFORMATION
  Report Type: 
  Country: None (occurrence: None)
  Receive Date: 20110627
  Receipt Date: 20110621
  Transmission Date: 20111010
  Serious: Yes (Life-Threatening, Hospitalization, Other)
  Sender: FDA-Public Use
  Company Number: GB-SANOFI-AVENTIS-2010SA015655

PATIENT
  Age: 53 Year
  Sex: Male
  Weight: 75.7 kg

DRUGS (14)
  1. OXALIPLATIN [Suspect]
     Route: 042
     Dates: start: 20100304, end: 20100304
  2. DOMPERIDONE [Concomitant]
     Dates: start: 20091119, end: 20100304
  3. LANSOPRAZOLE [Concomitant]
     Dates: start: 20091119, end: 20100304
  4. FLUOROURACIL [Suspect]
     Route: 042
     Dates: start: 20100304, end: 20100304
  5. LEUCOVORIN CALCIUM [Suspect]
     Route: 042
     Dates: start: 20100304, end: 20100304
  6. DIFFLAM [Concomitant]
     Dates: start: 20091119, end: 20100304
  7. ONDANSETRON [Concomitant]
     Dates: start: 20091123, end: 20110304
  8. AMLODIPINE [Concomitant]
     Dates: start: 20100104, end: 20100403
  9. CO-DANTHRAMER [Concomitant]
     Dates: start: 20091119, end: 20100304
  10. FLUOROURACIL [Suspect]
     Route: 042
     Dates: start: 20091123, end: 20091123
  11. CHLORPHENIRAMINE MALEATE [Concomitant]
     Dates: start: 20091123, end: 20100304
  12. OXALIPLATIN [Suspect]
     Route: 042
     Dates: start: 20091123, end: 20091123
  13. LEUCOVORIN CALCIUM [Suspect]
     Route: 042
     Dates: start: 20091123, end: 20091123
  14. DEXAMETHASONE [Concomitant]
     Dates: start: 20091123, end: 20100307

REACTIONS (4)
  - PERITONITIS [None]
  - ACUTE RESPIRATORY DISTRESS SYNDROME [None]
  - PULMONARY EMBOLISM [None]
  - RENAL FAILURE [None]
